FAERS Safety Report 11118996 (Version 1)
Quarter: 2015Q2

REPORT INFORMATION
  Report Type: Spontaneous
  Country: IT (occurrence: IT)
  Receive Date: 20150518
  Receipt Date: 20150518
  Transmission Date: 20150821
  Serious: Yes (Hospitalization)
  Sender: FDA-Public Use
  Company Number: IT-TEVA-562776ACC

PATIENT
  Age: 52 Year
  Sex: Female

DRUGS (5)
  1. ENDOXAN BAXTER - 500 MG POLVERE PER SOLUZIONE INIETTABILE [Suspect]
     Active Substance: CYCLOPHOSPHAMIDE
     Indication: BREAST CANCER
     Dosage: 760 MG CYCLICAL,POWDER FOR SOLUTION FOR INJECTION
     Route: 042
     Dates: start: 20150323, end: 20150323
  2. FLUOROURACILE TEVA - 500 MG/10 ML SOLUZIONE PER INFUSIONE [Suspect]
     Active Substance: FLUOROURACIL
     Indication: BREAST CANCER
     Dosage: 760 MG CYCLICAL
     Route: 042
     Dates: start: 20150323, end: 20150323
  3. SOLDESAM - 4 MG/ML SOLUZIONE INIETTABILE [Concomitant]
     Active Substance: DEXAMETHASONE
     Indication: PRODUCT USED FOR UNKNOWN INDICATION
     Dosage: 8 MG
     Route: 042
  4. EPIRUBICINA TEVA - 2 MG/ML SOLUZIONE INIETTABILE O PER INFUSIONE [Suspect]
     Active Substance: EPIRUBICIN
     Indication: BREAST CANCER
     Dosage: 150 MG CYCLICAL,SOLUTION FOR INJECTION/INFUSION
     Route: 042
     Dates: start: 20150323, end: 20150323
  5. ONDANSETRON KABI - 2 MG/ML SOLUZIONE INIETTABILE [Concomitant]
     Indication: PRODUCT USED FOR UNKNOWN INDICATION
     Dosage: 8 MG
     Route: 042

REACTIONS (1)
  - Febrile neutropenia [Recovered/Resolved]

NARRATIVE: CASE EVENT DATE: 20150404
